FAERS Safety Report 17451268 (Version 1)
Quarter: 2020Q1

REPORT INFORMATION
  Report Type: Spontaneous
  Country: US (occurrence: US)
  Receive Date: 20200211
  Receipt Date: 20200211
  Transmission Date: 20200409
  Serious: No
  Sender: FDA-Public Use
  Company Number: None

PATIENT
  Sex: Male

DRUGS (1)
  1. ENBREL [Suspect]
     Active Substance: ETANERCEPT
     Indication: PSORIASIS
     Dosage: ?          OTHER FREQUENCY:Q7DAYS ;?
     Route: 058
     Dates: start: 20191129

REACTIONS (4)
  - Product dose omission [None]
  - Product storage error [None]
  - Dizziness [None]
  - Memory impairment [None]
